FAERS Safety Report 18853095 (Version 1)
Quarter: 2021Q1

REPORT INFORMATION
  Report Type: Spontaneous
  Country: CN (occurrence: CN)
  Receive Date: 20210205
  Receipt Date: 20210205
  Transmission Date: 20210420
  Serious: Yes (Hospitalization)
  Sender: FDA-Public Use
  Company Number: CN-ASTRAZENECA-2021A023666

PATIENT
  Age: 18043 Day
  Sex: Female
  Weight: 68.5 kg

DRUGS (2)
  1. OSIMERTINIB MESYLATE. [Suspect]
     Active Substance: OSIMERTINIB MESYLATE
     Indication: DRUG THERAPY
     Route: 048
     Dates: start: 20201202, end: 20210125
  2. DOCETAXEL. [Suspect]
     Active Substance: DOCETAXEL
     Indication: CHEMOTHERAPY
     Route: 041
     Dates: start: 20201228, end: 20201228

REACTIONS (3)
  - Dyspnoea [Unknown]
  - Chest discomfort [Unknown]
  - Myelosuppression [Unknown]

NARRATIVE: CASE EVENT DATE: 20201225
